FAERS Safety Report 5083780-4 (Version None)
Quarter: 2006Q3

REPORT INFORMATION
  Report Type: 
  Country: None (occurrence: None)
  Receive Date: 20060818
  Receipt Date: 20060303
  Transmission Date: 20061208
  Serious: Yes (Hospitalization)
  Sender: FDA-Public Use
  Company Number: US-ABBOTT-06P-163-0326777-00

PATIENT
  Sex: Female
  Weight: 70.824 kg

DRUGS (16)
  1. HUMIRA [Suspect]
     Indication: RHEUMATOID ARTHRITIS
     Route: 058
     Dates: start: 20060208
  2. MEDICATION FOR DEPRESSION [Suspect]
     Indication: DEPRESSION
  3. CLONIDINE [Concomitant]
     Indication: BLOOD PRESSURE INCREASED
     Route: 062
  4. CARBAMAZEPINE [Concomitant]
     Indication: DRUG USE FOR UNKNOWN INDICATION
     Route: 048
  5. PANTOPRAZOLE SODIUM [Concomitant]
     Indication: GASTROOESOPHAGEAL REFLUX DISEASE
     Route: 048
  6. VERAPAMIL [Concomitant]
     Indication: BLOOD PRESSURE INCREASED
     Route: 048
  7. ZELNORM [Concomitant]
     Indication: IRRITABLE BOWEL SYNDROME
     Route: 048
  8. FOLIC ACID [Concomitant]
     Indication: VITAMIN SUPPLEMENTATION
     Route: 048
  9. METHOTREXATE [Concomitant]
     Indication: RHEUMATOID ARTHRITIS
  10. CYMBALTA [Concomitant]
     Indication: COMPLEX REGIONAL PAIN SYNDROME
     Route: 048
  11. DOXAZOSIN MESYLATE [Concomitant]
     Indication: DRUG USE FOR UNKNOWN INDICATION
  12. IMDUR [Concomitant]
     Indication: DRUG USE FOR UNKNOWN INDICATION
  13. DIOVAN [Concomitant]
     Indication: DRUG USE FOR UNKNOWN INDICATION
  14. ARIMIDEX [Concomitant]
     Indication: DRUG USE FOR UNKNOWN INDICATION
  15. CITALOPRAM HYDROBROMIDE [Concomitant]
     Indication: DRUG USE FOR UNKNOWN INDICATION
  16. LORAZEPAM [Concomitant]
     Indication: DRUG USE FOR UNKNOWN INDICATION

REACTIONS (12)
  - BLOOD IRON DECREASED [None]
  - BLOOD PRESSURE DECREASED [None]
  - BLOOD PRESSURE INCREASED [None]
  - BLOOD SODIUM DECREASED [None]
  - ESSENTIAL TREMOR [None]
  - FATIGUE [None]
  - HYPOAESTHESIA [None]
  - MOVEMENT DISORDER [None]
  - MUSCULAR WEAKNESS [None]
  - NO THERAPEUTIC RESPONSE [None]
  - PAIN [None]
  - SYNCOPE [None]
